FAERS Safety Report 5622636-2 (Version None)
Quarter: 2008Q1

REPORT INFORMATION
  Report Type: 
  Country: None (occurrence: None)
  Receive Date: 20080211
  Receipt Date: 20080211
  Transmission Date: 20080703
  Serious: Yes (Hospitalization)
  Sender: FDA-Public Use
  Company Number: None

PATIENT
  Age: 58 Year
  Sex: Male

DRUGS (2)
  1. FENTANYL [Suspect]
     Indication: PAIN
     Dosage: 75MCG  UD  TOP
     Route: 061
     Dates: start: 20071105, end: 20071109
  2. MORPHINE [Suspect]
     Dosage: 30MG  OTHER  PO
     Route: 048
     Dates: start: 20071105, end: 20071109

REACTIONS (1)
  - SEDATION [None]
